FAERS Safety Report 9328741 (Version 1)
Quarter: 2013Q2

REPORT INFORMATION
  Report Type: Spontaneous
  Country: US (occurrence: US)
  Receive Date: 20130604
  Receipt Date: 20130604
  Transmission Date: 20140414
  Serious: No
  Sender: FDA-Public Use
  Company Number: US-SANOFI-AVENTIS-2013SA012213

PATIENT
  Sex: Male

DRUGS (2)
  1. LANTUS [Suspect]
  2. INSULIN DETEMIR [Suspect]

REACTIONS (6)
  - Nausea [Unknown]
  - Abdominal pain upper [Unknown]
  - Myalgia [Unknown]
  - Dizziness [Unknown]
  - Vertigo [Unknown]
  - Arthralgia [Unknown]
